FAERS Safety Report 5585329-6 (Version None)
Quarter: 2008Q1

REPORT INFORMATION
  Report Type: 
  Country: None (occurrence: None)
  Receive Date: 20080109
  Receipt Date: 20071227
  Transmission Date: 20080703
  Serious: Yes (Hospitalization)
  Sender: FDA-Public Use
  Company Number: US-BAYER-200714683NA

PATIENT
  Age: 44 Year
  Sex: Female
  Weight: 50 kg

DRUGS (2)
  1. BETASERON [Suspect]
     Indication: RELAPSING-REMITTING MULTIPLE SCLEROSIS
     Dosage: TOTAL DAILY DOSE: 8 MIU
     Route: 058
     Dates: start: 20071004
  2. BETASERON [Suspect]
     Route: 058
     Dates: start: 20071201

REACTIONS (4)
  - ABASIA [None]
  - DYSARTHRIA [None]
  - GAIT DISTURBANCE [None]
  - MOVEMENT DISORDER [None]
